FAERS Safety Report 7598331-X (Version None)
Quarter: 2011Q3

REPORT INFORMATION
  Report Type: 
  Country: None (occurrence: None)
  Receive Date: 20110708
  Receipt Date: 20110628
  Transmission Date: 20111222
  Serious: Yes (Disabling)
  Sender: FDA-Public Use
  Company Number: PHHY2011IT52826

PATIENT
  Sex: Female

DRUGS (8)
  1. PACLITAXEL [Concomitant]
     Dosage: 120 MG, UNK
     Route: 042
  2. LYRICA [Concomitant]
     Dosage: 75 MG, UNK
     Route: 048
  3. CO-EFFERALGAN [Concomitant]
  4. ZOMETA [Suspect]
     Indication: METASTASES TO BONE
     Dosage: 4 MG, QMO
     Route: 042
     Dates: start: 20091211, end: 20100205
  5. HERCEPTIN [Concomitant]
     Dosage: 130 MG, UNK
  6. MOVIPREP [Concomitant]
     Dosage: 13.8 G, UNK
  7. CACIT [Concomitant]
     Dosage: 1000 MG, UNK
  8. MORPHINE [Concomitant]
     Dosage: 20 MG, UNK

REACTIONS (1)
  - OSTEONECROSIS OF JAW [None]
